FAERS Safety Report 4773859-6 (Version None)
Quarter: 2005Q3

REPORT INFORMATION
  Report Type: 
  Country: None (occurrence: None)
  Receive Date: 20050920
  Receipt Date: 20050902
  Transmission Date: 20060218
  Serious: Yes (Life-Threatening, Hospitalization)
  Sender: FDA-Public Use
  Company Number: JP-ROCHE-416365

PATIENT
  Age: 73 Year
  Sex: Female

DRUGS (11)
  1. PANALDINE [Suspect]
     Indication: THROMBOSIS PROPHYLAXIS
     Dosage: ADDITIONAL INDICATIONS: STENT PLACEMENT; ISCHAEMIC HEART DISEASE.
     Route: 048
     Dates: start: 20050715, end: 20050823
  2. GASTER D [Concomitant]
     Route: 048
     Dates: start: 20050715
  3. FRANDOL [Concomitant]
     Indication: ANGINA PECTORIS
     Route: 046
     Dates: start: 20050715
  4. NORVASC [Concomitant]
     Indication: ANGINA PECTORIS
     Route: 048
     Dates: start: 20050608
  5. LIPOVAS [Concomitant]
     Indication: HYPERLIPIDAEMIA
     Route: 048
  6. DILTIAZEM HCL [Concomitant]
     Indication: ANGINA PECTORIS
     Route: 048
     Dates: start: 20050608
  7. SODIUM BICARBONATE [Concomitant]
     Indication: GASTRITIS
     Route: 048
     Dates: start: 20050715
  8. ACINON [Concomitant]
     Indication: GASTRITIS
     Route: 048
     Dates: start: 20050728
  9. MARZULENE S [Concomitant]
     Indication: GASTRITIS
     Route: 048
  10. ZANTAC [Concomitant]
     Indication: GASTRITIS
     Route: 048
     Dates: end: 20050823
  11. PLETAL [Concomitant]
     Indication: ANGINA PECTORIS
     Route: 048
     Dates: start: 20050823

REACTIONS (8)
  - AGRANULOCYTOSIS [None]
  - CHEST DISCOMFORT [None]
  - COUGH [None]
  - DECREASED APPETITE [None]
  - LEUKOPENIA [None]
  - MALAISE [None]
  - PHARYNX DISCOMFORT [None]
  - THROMBOCYTOPENIA [None]
